FAERS Safety Report 21671204 (Version 3)
Quarter: 2022Q4

REPORT INFORMATION
  Report Type: Other
  Country: US (occurrence: US)
  Receive Date: 20221202
  Receipt Date: 20221219
  Transmission Date: 20230112
  Serious: No
  Sender: FDA-Public Use
  Company Number: US-GBT-015840

PATIENT
  Age: 7 Year
  Sex: Female

DRUGS (1)
  1. OXBRYTA [Suspect]
     Active Substance: VOXELOTOR
     Indication: Sickle cell disease
     Dosage: 3 (300 MG TABLETS FOR ORAL SUSPENSION)
     Route: 048

REACTIONS (5)
  - Sickle cell anaemia with crisis [Recovered/Resolved]
  - Product administration interrupted [Unknown]
  - Asthenia [Unknown]
  - Decreased appetite [Unknown]
  - Sickle cell anaemia with crisis [Recovered/Resolved]

NARRATIVE: CASE EVENT DATE: 20220701
